FAERS Safety Report 4443665-0 (Version None)
Quarter: 2004Q3

REPORT INFORMATION
  Report Type: 
  Country: None (occurrence: None)
  Receive Date: 20040908
  Receipt Date: 20040828
  Transmission Date: 20050211
  Serious: Yes (Hospitalization)
  Sender: FDA-Public Use
  Company Number: GB-GLAXOSMITHKLINE-B0343830A

PATIENT
  Age: 55 Year
  Sex: Male
  Weight: 75 kg

DRUGS (4)
  1. ZYBAN [Suspect]
     Dosage: 150MG PER DAY
     Route: 048
     Dates: start: 20040812, end: 20040815
  2. VIOXX [Concomitant]
     Indication: ARTHRITIS
     Dosage: 12.5MG PER DAY
     Route: 048
     Dates: start: 20020701
  3. CO-CODAMOL [Concomitant]
     Indication: ARTHRITIS
     Route: 048
     Dates: start: 19980813
  4. PRIADEL [Concomitant]
     Indication: DEPRESSION
     Dosage: 400MG PER DAY
     Route: 048
     Dates: start: 20020701, end: 20030101

REACTIONS (4)
  - CHEST PAIN [None]
  - HYPERHIDROSIS [None]
  - NAUSEA [None]
  - PAIN IN EXTREMITY [None]
